FAERS Safety Report 4607749-6 (Version None)
Quarter: 2005Q1

REPORT INFORMATION
  Report Type: 
  Country: None (occurrence: None)
  Receive Date: 20050310
  Receipt Date: 20050225
  Transmission Date: 20050727
  Serious: Yes (Hospitalization)
  Sender: FDA-Public Use
  Company Number: 2005038283

PATIENT
  Age: 45 Year
  Sex: Male

DRUGS (7)
  1. ZITHROMAX [Suspect]
     Indication: NASOPHARYNGITIS
     Dosage: 500 MG (1D), ORAL
     Route: 048
     Dates: start: 20050221, end: 20050222
  2. OSELTAMIVIR (OSELTAMIVIR) [Suspect]
     Indication: INFLUENZA
     Dosage: 1 D, ORAL
     Route: 048
     Dates: start: 20050216, end: 20050220
  3. HUSCODE (CHLORPHENAMINE MALEATE, DIHYDROCODEINE PHOSPHATE, METHYLEPHED [Concomitant]
  4. ACETAMINOPHEN [Concomitant]
  5. SERRAPEPTASE (SERRAPEPTASE) [Concomitant]
  6. MEQUITAZINE (MEQUITAZINE) [Concomitant]
  7. AMBROXOL HYDROCHLORIDE (AMBROXOL HYDROCHLORIDE) [Concomitant]

REACTIONS (4)
  - CONVULSION [None]
  - ENCEPHALOPATHY [None]
  - LOSS OF CONSCIOUSNESS [None]
  - VIRAL INFECTION [None]
